FAERS Safety Report 8883977 (Version 1)
Quarter: 2012Q4

REPORT INFORMATION
  Report Type: 
  Country: US (occurrence: US)
  Receive Date: 20121102
  Receipt Date: 20121102
  Transmission Date: 20130627
  Serious: No
  Sender: FDA-Public Use
  Company Number: US-ASTRAZENECA-2012SE25529

PATIENT
  Age: 67 Year
  Sex: Female
  Weight: 67.1 kg

DRUGS (3)
  1. CRESTOR [Suspect]
     Indication: BLOOD CHOLESTEROL INCREASED
     Route: 048
     Dates: start: 20120315, end: 20120316
  2. CRESTOR [Suspect]
     Indication: BLOOD CHOLESTEROL INCREASED
     Dosage: 5 MG EITHER EVERY OTHER DAY OR TWO TIMES A DAY OR TWO TIMES A WEEK OR ONCE A WEEK
     Route: 048
  3. EXFORGE [Concomitant]
     Indication: HYPERTENSION

REACTIONS (9)
  - Pharyngeal oedema [Unknown]
  - Oedema peripheral [Unknown]
  - Chest discomfort [Recovered/Resolved]
  - Dry throat [Unknown]
  - Swelling face [Unknown]
  - Headache [Unknown]
  - Nausea [Unknown]
  - Dizziness [Recovered/Resolved]
  - Intentional drug misuse [Unknown]
